FAERS Safety Report 7206706-3 (Version None)
Quarter: 2010Q4

REPORT INFORMATION
  Report Type: 
  Country: None (occurrence: None)
  Receive Date: 20101221
  Receipt Date: 20101206
  Transmission Date: 20110411
  Serious: Yes (Other)
  Sender: FDA-Public Use
  Company Number: 1000017750

PATIENT
  Age: 43 Year
  Sex: Female

DRUGS (3)
  1. LEXAPRO [Suspect]
     Indication: DEPRESSION
     Dosage: (15 MG, 1 IN 1 D) ( 10 MG, 1 IN 1 D) (5 MG, 1 IN 1 D)
  2. LEXAPRO [Suspect]
     Indication: DEPRESSION
     Dosage: 5 MG
  3. RISPERIDONE [Concomitant]

REACTIONS (2)
  - AKATHISIA [None]
  - WITHDRAWAL SYNDROME [None]
